FAERS Safety Report 23706218 (Version 1)
Quarter: 2024Q2

REPORT INFORMATION
  Report Type: Spontaneous
  Country: US (occurrence: None)
  Receive Date: 20240403
  Receipt Date: 20240403
  Transmission Date: 20240716
  Serious: Yes (Death)
  Sender: FDA-Public Use
  Company Number: None

PATIENT
  Age: 52 Year
  Sex: Female
  Weight: 89 kg

DRUGS (2)
  1. LAMIVUDINE [Suspect]
     Active Substance: LAMIVUDINE
     Indication: HIV infection
     Dosage: 2.5 ML DAILY ORAL
     Route: 048
     Dates: start: 20230906, end: 20240229
  2. TIVICAY [Suspect]
     Active Substance: DOLUTEGRAVIR SODIUM
     Indication: HIV infection
     Dosage: 50 MG DAILY ORAL?
     Route: 048
     Dates: start: 20230906, end: 20240229

REACTIONS (1)
  - Death [None]

NARRATIVE: CASE EVENT DATE: 20240403
